FAERS Safety Report 4506270-3 (Version None)
Quarter: 2004Q4

REPORT INFORMATION
  Report Type: 
  Country: None (occurrence: None)
  Receive Date: 20041119
  Receipt Date: 20041112
  Transmission Date: 20050328
  Serious: Yes (Hospitalization, Disabling, Other)
  Sender: FDA-Public Use
  Company Number: US-MERCK-0411USA02228

PATIENT
  Age: 59 Year
  Sex: Male

DRUGS (2)
  1. VIOXX [Suspect]
     Indication: ARTHRITIS
     Route: 048
     Dates: start: 19990101, end: 20031101
  2. CODEINE [Concomitant]
     Route: 065

REACTIONS (3)
  - ADVERSE EVENT [None]
  - ATRIOVENTRICULAR BLOCK [None]
  - CARDIAC DISORDER [None]
